FAERS Safety Report 16445673 (Version 1)
Quarter: 2019Q2

REPORT INFORMATION
  Report Type: Spontaneous
  Country: US (occurrence: US)
  Receive Date: 20190508
  Receipt Date: 20190508
  Transmission Date: 20190711
  Serious: Yes (Hospitalization)
  Sender: FDA-Public Use
  Company Number: None

PATIENT
  Age: 62 Year
  Sex: Male
  Weight: 102.1 kg

DRUGS (2)
  1. NIVOLUMAB [Suspect]
     Active Substance: NIVOLUMAB
     Indication: THYROID CANCER
     Dosage: ?          OTHER DOSE:3 MG/KG;?
     Route: 042
  2. IPILIMUMAB [Suspect]
     Active Substance: IPILIMUMAB
     Indication: THYROID CANCER
     Dosage: ?          OTHER DOSE:1 MG/KG;OTHER FREQUENCY:EVERY 6 WEEKS;?
     Route: 042

REACTIONS (1)
  - Postoperative wound infection [None]

NARRATIVE: CASE EVENT DATE: 20190505
